FAERS Safety Report 6734674-7 (Version None)
Quarter: 2010Q2

REPORT INFORMATION
  Report Type: 
  Country: None (occurrence: None)
  Receive Date: 20100519
  Receipt Date: 20100519
  Transmission Date: 20101027
  Serious: No
  Sender: FDA-Public Use
  Company Number: None

PATIENT
  Age: 64 Year
  Sex: Male
  Weight: 77.1115 kg

DRUGS (1)
  1. SUMATRIPTAN SUCCINATE [Suspect]
     Indication: MIGRAINE
     Dosage: 100 MG PRN MIGRAINES PO
     Route: 048

REACTIONS (3)
  - NO THERAPEUTIC RESPONSE [None]
  - PRODUCT SUBSTITUTION ISSUE [None]
  - PRODUCT TASTE ABNORMAL [None]
